FAERS Safety Report 7043551-6 (Version None)
Quarter: 2010Q4

REPORT INFORMATION
  Report Type: 
  Country: None (occurrence: None)
  Receive Date: 20101013
  Receipt Date: 20101006
  Transmission Date: 20110411
  Serious: Yes (Other)
  Sender: FDA-Public Use
  Company Number: A0804358A

PATIENT
  Sex: Male

DRUGS (1)
  1. AVANDIA [Suspect]
     Indication: DIABETES MELLITUS
     Dosage: 4MG TWICE PER DAY
     Route: 048
     Dates: start: 20060126, end: 20060703

REACTIONS (6)
  - CEREBROVASCULAR ACCIDENT [None]
  - EPISTAXIS [None]
  - EYE INJURY [None]
  - HEART INJURY [None]
  - MUSCULOSKELETAL DISCOMFORT [None]
  - NERVOUS SYSTEM DISORDER [None]
